FAERS Safety Report 21835587 (Version 11)
Quarter: 2024Q4

REPORT INFORMATION
  Report Type: Spontaneous
  Country: CA (occurrence: CA)
  Receive Date: 20230109
  Receipt Date: 20241216
  Transmission Date: 20250114
  Serious: Yes (Hospitalization)
  Sender: ROCHE
  Company Number: CA-ROCHE-3256192

PATIENT
  Age: 53 Year
  Sex: Female

DRUGS (87)
  1. DIMETHYL SULFONE [Suspect]
     Active Substance: DIMETHYL SULFONE
     Indication: Product used for unknown indication
     Route: 065
  2. FISH OIL [Suspect]
     Active Substance: FISH OIL
     Indication: Product used for unknown indication
     Route: 048
  3. FISH OIL [Suspect]
     Active Substance: FISH OIL
     Route: 048
  4. FISH OIL [Suspect]
     Active Substance: FISH OIL
     Route: 048
  5. FISH OIL [Suspect]
     Active Substance: FISH OIL
     Route: 048
  6. ALCOHOL [Suspect]
     Active Substance: ALCOHOL
     Indication: Product used for unknown indication
     Route: 065
  7. SOMATROPIN [Interacting]
     Active Substance: SOMATROPIN
     Indication: Product used for unknown indication
     Route: 062
  8. SOMATROPIN [Interacting]
     Active Substance: SOMATROPIN
     Route: 065
  9. SOMATROPIN [Interacting]
     Active Substance: SOMATROPIN
     Route: 062
  10. DOCONEXENT\ICOSAPENT\OMEGA-3 FATTY ACIDS [Interacting]
     Active Substance: DOCONEXENT\ICOSAPENT\OMEGA-3 FATTY ACIDS
     Indication: Product used for unknown indication
     Route: 048
  11. DOCONEXENT\ICOSAPENT\OMEGA-3 FATTY ACIDS [Interacting]
     Active Substance: DOCONEXENT\ICOSAPENT\OMEGA-3 FATTY ACIDS
     Route: 048
  12. OMEGA-3 FATTY ACIDS [Interacting]
     Active Substance: OMEGA-3 FATTY ACIDS
     Indication: Product used for unknown indication
     Route: 048
  13. OMEGA-3 FATTY ACIDS [Interacting]
     Active Substance: OMEGA-3 FATTY ACIDS
     Route: 048
  14. OMEGA-3 FATTY ACIDS [Interacting]
     Active Substance: OMEGA-3 FATTY ACIDS
     Route: 048
  15. LORAZEPAM [Interacting]
     Active Substance: LORAZEPAM
     Indication: Product used for unknown indication
     Dosage: FORM OF ADMIN NOT SPECIFIED
     Route: 065
  16. LORAZEPAM [Interacting]
     Active Substance: LORAZEPAM
     Dosage: FORM OF ADMIN NOT SPECIFIED
     Route: 048
  17. ESTRADIOL [Interacting]
     Active Substance: ESTRADIOL
     Indication: Product used for unknown indication
     Route: 048
  18. ESTRADIOL [Interacting]
     Active Substance: ESTRADIOL
     Route: 065
  19. ESTRADIOL [Interacting]
     Active Substance: ESTRADIOL
     Route: 062
  20. ESTRADIOL [Interacting]
     Active Substance: ESTRADIOL
     Route: 062
  21. BUDESONIDE\FORMOTEROL FUMARATE [Interacting]
     Active Substance: BUDESONIDE\FORMOTEROL FUMARATE
     Indication: Product used for unknown indication
     Route: 048
  22. BUDESONIDE\FORMOTEROL FUMARATE [Interacting]
     Active Substance: BUDESONIDE\FORMOTEROL FUMARATE
     Route: 048
  23. BUDESONIDE\FORMOTEROL FUMARATE [Interacting]
     Active Substance: BUDESONIDE\FORMOTEROL FUMARATE
     Route: 048
  24. BUDESONIDE\FORMOTEROL FUMARATE [Interacting]
     Active Substance: BUDESONIDE\FORMOTEROL FUMARATE
     Route: 048
  25. BUDESONIDE\FORMOTEROL FUMARATE [Interacting]
     Active Substance: BUDESONIDE\FORMOTEROL FUMARATE
     Route: 048
  26. BUDESONIDE\FORMOTEROL FUMARATE [Interacting]
     Active Substance: BUDESONIDE\FORMOTEROL FUMARATE
     Route: 048
  27. BUDESONIDE\FORMOTEROL FUMARATE [Interacting]
     Active Substance: BUDESONIDE\FORMOTEROL FUMARATE
     Route: 065
  28. DIMETHYL SULFONE [Interacting]
     Active Substance: DIMETHYL SULFONE
     Indication: Product used for unknown indication
     Route: 065
  29. DIMETHYL SULFONE [Interacting]
     Active Substance: DIMETHYL SULFONE
     Route: 065
  30. DIMETHYL SULFONE [Interacting]
     Active Substance: DIMETHYL SULFONE
     Route: 065
  31. PROGESTERONE [Interacting]
     Active Substance: PROGESTERONE
     Indication: Product used for unknown indication
     Route: 048
  32. PROGESTERONE [Interacting]
     Active Substance: PROGESTERONE
     Route: 048
  33. PROGESTERONE [Interacting]
     Active Substance: PROGESTERONE
     Route: 048
  34. PROGESTERONE [Interacting]
     Active Substance: PROGESTERONE
     Route: 048
  35. PROGESTERONE [Interacting]
     Active Substance: PROGESTERONE
     Route: 048
  36. PROGESTERONE [Interacting]
     Active Substance: PROGESTERONE
     Route: 048
  37. PROGESTERONE [Interacting]
     Active Substance: PROGESTERONE
     Route: 048
  38. VARENICLINE [Interacting]
     Active Substance: VARENICLINE
     Indication: Product used for unknown indication
     Route: 065
  39. VARENICLINE [Interacting]
     Active Substance: VARENICLINE
     Route: 065
  40. ARBONNE NUTRIMIN C RE9 REALITY SPF 8 DAY CREME [Interacting]
     Active Substance: OCTINOXATE\OXYBENZONE
     Indication: Product used for unknown indication
     Route: 048
  41. VENLAFAXINE [Interacting]
     Active Substance: VENLAFAXINE HYDROCHLORIDE
     Indication: Product used for unknown indication
     Route: 065
  42. BIFIDOBACTERIUM LONGUM [Interacting]
     Active Substance: BIFIDOBACTERIUM LONGUM
     Indication: Product used for unknown indication
     Route: 048
  43. BIFIDOBACTERIUM LONGUM [Interacting]
     Active Substance: BIFIDOBACTERIUM LONGUM
     Route: 065
  44. BIFIDOBACTERIUM LONGUM [Interacting]
     Active Substance: BIFIDOBACTERIUM LONGUM
     Route: 065
  45. BIFIDOBACTERIUM LONGUM [Interacting]
     Active Substance: BIFIDOBACTERIUM LONGUM
     Route: 065
  46. DOCONEXENT [Interacting]
     Active Substance: DOCONEXENT
     Indication: Product used for unknown indication
     Route: 048
  47. DOCONEXENT [Interacting]
     Active Substance: DOCONEXENT
     Route: 048
  48. ICOSAPENT [Interacting]
     Active Substance: ICOSAPENT
     Indication: Product used for unknown indication
     Route: 048
  49. ICOSAPENT [Interacting]
     Active Substance: ICOSAPENT
     Route: 048
  50. LACTOBACILLUS ACIDOPHILUS [Interacting]
     Active Substance: LACTOBACILLUS ACIDOPHILUS
     Indication: Product used for unknown indication
     Route: 067
  51. LACTOBACILLUS ACIDOPHILUS [Interacting]
     Active Substance: LACTOBACILLUS ACIDOPHILUS
     Route: 048
  52. LACTOBACILLUS ACIDOPHILUS [Interacting]
     Active Substance: LACTOBACILLUS ACIDOPHILUS
     Route: 048
  53. LACTOBACILLUS ACIDOPHILUS [Interacting]
     Active Substance: LACTOBACILLUS ACIDOPHILUS
     Route: 048
  54. LACTOBACILLUS ACIDOPHILUS [Interacting]
     Active Substance: LACTOBACILLUS ACIDOPHILUS
     Route: 048
  55. LACTOBACILLUS ACIDOPHILUS [Interacting]
     Active Substance: LACTOBACILLUS ACIDOPHILUS
     Route: 048
  56. LACTOBACILLUS CASEI [Interacting]
     Active Substance: LACTOBACILLUS CASEI
     Indication: Product used for unknown indication
     Route: 065
  57. LACTOBACILLUS CASEI [Interacting]
     Active Substance: LACTOBACILLUS CASEI
     Route: 065
  58. LACTOBACILLUS RHAMNOSUS [Interacting]
     Active Substance: LACTOBACILLUS RHAMNOSUS
     Indication: Product used for unknown indication
     Dosage: 1 DOSAGE
     Route: 065
  59. LACTOBACILLUS RHAMNOSUS [Interacting]
     Active Substance: LACTOBACILLUS RHAMNOSUS
     Dosage: 1 DOSAGE
     Route: 065
  60. LINOLEIC ACID [Interacting]
     Active Substance: LINOLEIC ACID
     Indication: Product used for unknown indication
     Route: 048
  61. LINOLEIC ACID [Interacting]
     Active Substance: LINOLEIC ACID
     Route: 048
  62. LINOLEIC ACID [Interacting]
     Active Substance: LINOLEIC ACID
     Route: 048
  63. LINOLEIC ACID [Interacting]
     Active Substance: LINOLEIC ACID
     Route: 048
  64. THIOCTIC ACID [Interacting]
     Active Substance: THIOCTIC ACID
     Indication: Product used for unknown indication
     Route: 065
  65. THIOCTIC ACID [Interacting]
     Active Substance: THIOCTIC ACID
     Route: 065
  66. UBIDECARENONE [Interacting]
     Active Substance: UBIDECARENONE
     Indication: Product used for unknown indication
     Route: 065
  67. UBIDECARENONE [Interacting]
     Active Substance: UBIDECARENONE
     Route: 048
  68. UBIDECARENONE [Interacting]
     Active Substance: UBIDECARENONE
     Route: 048
  69. VITAMIN A [Interacting]
     Active Substance: VITAMIN A
     Indication: Product used for unknown indication
     Route: 048
  70. VITAMIN A [Interacting]
     Active Substance: VITAMIN A
     Route: 048
  71. VITAMIN A [Interacting]
     Active Substance: VITAMIN A
     Route: 048
  72. VITAMIN C [Interacting]
     Active Substance: ASCORBIC ACID
     Indication: Product used for unknown indication
     Route: 048
  73. VITAMIN C [Interacting]
     Active Substance: ASCORBIC ACID
     Route: 048
  74. VITAMIN C [Interacting]
     Active Substance: ASCORBIC ACID
     Route: 048
  75. VITAMIN C [Interacting]
     Active Substance: ASCORBIC ACID
     Route: 048
  76. ERGOCALCIFEROL [Interacting]
     Active Substance: ERGOCALCIFEROL
     Indication: Product used for unknown indication
     Route: 048
  77. ERGOCALCIFEROL [Interacting]
     Active Substance: ERGOCALCIFEROL
     Route: 048
  78. ERGOCALCIFEROL [Interacting]
     Active Substance: ERGOCALCIFEROL
     Route: 048
  79. .ALPHA.-TOCOPHEROL, D- [Interacting]
     Active Substance: .ALPHA.-TOCOPHEROL, D-
     Indication: Product used for unknown indication
     Route: 048
  80. LINOLEIC ACID, CONJUGATED [Interacting]
     Active Substance: LINOLEIC ACID, CONJUGATED
     Indication: Product used for unknown indication
     Route: 048
  81. LINOLEIC ACID, CONJUGATED [Interacting]
     Active Substance: LINOLEIC ACID, CONJUGATED
     Route: 048
  82. VARENICLINE TARTRATE [Interacting]
     Active Substance: VARENICLINE TARTRATE
     Indication: Product used for unknown indication
     Route: 065
  83. VARENICLINE TARTRATE [Interacting]
     Active Substance: VARENICLINE TARTRATE
     Route: 065
  84. VARENICLINE TARTRATE [Interacting]
     Active Substance: VARENICLINE TARTRATE
     Route: 065
  85. VENLAFAXINE HYDROCHLORIDE [Interacting]
     Active Substance: VENLAFAXINE HYDROCHLORIDE
     Indication: Product used for unknown indication
     Route: 065
  86. VITAMIN D [Interacting]
     Active Substance: VITAMIN D NOS
     Indication: Product used for unknown indication
     Route: 065
  87. VITAMIN E [Interacting]
     Active Substance: .ALPHA.-TOCOPHEROL
     Indication: Product used for unknown indication
     Route: 048

REACTIONS (6)
  - Drug-induced liver injury [Recovered/Resolved]
  - Hepatic cirrhosis [Recovered/Resolved]
  - Hepatic encephalopathy [Recovered/Resolved]
  - Hepatic necrosis [Recovered/Resolved]
  - Hepatotoxicity [Recovered/Resolved]
  - Drug interaction [Unknown]
